FAERS Safety Report 6015481-X (Version None)
Quarter: 2008Q4

REPORT INFORMATION
  Report Type: 
  Country: None (occurrence: None)
  Receive Date: 20081222
  Receipt Date: 20081218
  Transmission Date: 20090506
  Serious: Yes (Hospitalization)
  Sender: FDA-Public Use
  Company Number: US-ELI_LILLY_AND_COMPANY-US200812004777

PATIENT
  Sex: Male
  Weight: 120.18 kg

DRUGS (7)
  1. BYETTA [Suspect]
     Indication: TYPE 2 DIABETES MELLITUS
     Dosage: 5 UG, 2/D
     Route: 058
     Dates: start: 20081127, end: 20081211
  2. BYETTA [Suspect]
     Dosage: 5 UG, 2/D
     Route: 058
     Dates: start: 20081201
  3. METFORMIN HCL [Concomitant]
     Indication: TYPE 2 DIABETES MELLITUS
     Dosage: UNK, UNKNOWN
     Dates: end: 20081211
  4. METFORMIN HCL [Concomitant]
     Dates: start: 20081201
  5. GLIMEPIRIDE [Concomitant]
     Indication: TYPE 2 DIABETES MELLITUS
     Dosage: UNK, UNKNOWN
  6. ATENOLOL [Concomitant]
     Indication: CARDIAC DISORDER
     Dosage: UNK, UNKNOWN
  7. CARDIAC THERAPY [Concomitant]
     Dosage: UNK, UNKNOWN

REACTIONS (5)
  - ABDOMINAL PAIN UPPER [None]
  - ARTERIAL THROMBOSIS [None]
  - CHEST PAIN [None]
  - MYOCARDIAL INFARCTION [None]
  - VOMITING [None]
